FAERS Safety Report 21772445 (Version 1)
Quarter: 2022Q4

REPORT INFORMATION
  Report Type: Report from Study
  Country: IT (occurrence: IT)
  Receive Date: 20221223
  Receipt Date: 20221223
  Transmission Date: 20230113
  Serious: Yes (Other)
  Sender: FDA-Public Use
  Company Number: None

PATIENT
  Age: 73 Year
  Sex: Female

DRUGS (6)
  1. COPAXONE [Suspect]
     Active Substance: GLATIRAMER ACETATE
     Indication: Multiple sclerosis
     Dosage: 40 MG/ML 3 TIMES A WEEK, DURATION : 923 DAYS, FREQUENCY TIME : 3 WEEKS
     Route: 065
     Dates: start: 20170112, end: 20190724
  2. GLATIRAMER ACETATE [Suspect]
     Active Substance: GLATIRAMER ACETATE
     Indication: Relapsing multiple sclerosis
     Dosage: 3 TIMES A WEEK (40 MG/ML ), UNIT DOSE : 1 DOSAGE FORM
     Route: 065
  3. ATORVASTATIN [Concomitant]
     Active Substance: ATORVASTATIN
     Indication: Product used for unknown indication
     Dosage: NOT KNOWN
  4. AMANTADINE HYDROCHLORIDE [Concomitant]
     Active Substance: AMANTADINE HYDROCHLORIDE
     Indication: Parkinsonism
     Dosage: 100 MILLIGRAM DAILY; 2 TABLETS OF 100 MG PER DAY
  5. TAVOR [Concomitant]
     Indication: Product used for unknown indication
     Dosage: 1 MILLIGRAM DAILY; TAVOR 1 MG IN THE EVENING
  6. OSSIBUTININA CLORIDRATO MYLAN GENERICS [Concomitant]
     Indication: Micturition urgency
     Dosage: 10 MILLIGRAM DAILY; 5 MG TWICE A DAY

REACTIONS (1)
  - Breast mass [Unknown]

NARRATIVE: CASE EVENT DATE: 20221108
